FAERS Safety Report 5467733-X (Version None)
Quarter: 2007Q3

REPORT INFORMATION
  Report Type: 
  Country: None (occurrence: None)
  Receive Date: 20070814
  Receipt Date: 20070523
  Transmission Date: 20080115
  Serious: No
  Sender: FDA-Public Use
  Company Number: 200713851US

PATIENT
  Age: 40 Year
  Sex: Female

DRUGS (7)
  1. APIDRA [Suspect]
     Indication: TYPE 2 DIABETES MELLITUS
     Dates: start: 20070101
  2. LANTUS [Suspect]
     Indication: TYPE 2 DIABETES MELLITUS
     Dosage: 26 U QPM INJ
  3. QUETIAPINE FUMARATE (SEROQUEL /01270902/) [Concomitant]
  4. PROZAC [Concomitant]
  5. XANAX [Concomitant]
  6. LANTUS [Concomitant]
  7. PREDNISONE [Concomitant]

REACTIONS (5)
  - BLOOD GLUCOSE INCREASED [None]
  - DIABETES MELLITUS INADEQUATE CONTROL [None]
  - DYSARTHRIA [None]
  - FATIGUE [None]
  - SENSORIMOTOR DISORDER [None]
